FAERS Safety Report 10551899 (Version 5)
Quarter: 2015Q2

REPORT INFORMATION
  Report Type: Spontaneous
  Country: US (occurrence: US)
  Receive Date: 20141029
  Receipt Date: 20150430
  Transmission Date: 20150821
  Serious: Yes (Hospitalization, Disabling)
  Sender: FDA-Public Use
  Company Number: US-PFIZER INC-2014295290

PATIENT
  Age: 42 Year
  Sex: Female
  Weight: 104 kg

DRUGS (13)
  1. PRISTINE [Concomitant]
     Dosage: UNK
  2. AGAROL [Concomitant]
     Dosage: UNK
  3. PRILOSEC [Suspect]
     Active Substance: OMEPRAZOLE MAGNESIUM
     Indication: GASTROOESOPHAGEAL REFLUX DISEASE
     Dosage: UNK
     Route: 048
     Dates: end: 20051230
  4. LORAZEPAM. [Suspect]
     Active Substance: LORAZEPAM
     Indication: SEIZURE
     Dosage: 10 MG, UNK
     Route: 048
     Dates: start: 20051230, end: 20051230
  5. SEROQUEL [Concomitant]
     Active Substance: QUETIAPINE FUMARATE
     Indication: BIPOLAR DISORDER
     Dosage: 4 MG, UNK
     Route: 048
     Dates: end: 20051230
  6. TOPAMAX [Concomitant]
     Active Substance: TOPIRAMATE
     Dosage: UNK
  7. POTASSIUM CHLORIDE. [Suspect]
     Active Substance: POTASSIUM CHLORIDE
     Indication: BLOOD POTASSIUM DECREASED
     Dosage: UNK
     Route: 048
     Dates: end: 20051230
  8. MECLIZINE [Concomitant]
     Active Substance: MECLIZINE\MECLIZINE HYDROCHLORIDE
     Indication: DIZZINESS
     Dosage: UNK
     Route: 048
     Dates: start: 20051230, end: 20051230
  9. ZOLOFT [Suspect]
     Active Substance: SERTRALINE HYDROCHLORIDE
     Indication: BIPOLAR DISORDER
     Dosage: 50 MG, 1X/DAY
     Route: 048
     Dates: start: 20040409, end: 20051230
  10. PRILOSEC [Suspect]
     Active Substance: OMEPRAZOLE MAGNESIUM
     Indication: SINUSITIS
  11. AZITHROMYCIN [Concomitant]
     Active Substance: AZITHROMYCIN ANHYDROUS
     Indication: SINUSITIS
     Dosage: UNK
     Route: 048
     Dates: start: 200512, end: 20051230
  12. FUROSEMIDE. [Concomitant]
     Active Substance: FUROSEMIDE
     Dosage: UNK
     Route: 048
     Dates: end: 20051230
  13. RANOXYL [Concomitant]
     Dosage: UNK

REACTIONS (15)
  - Abdominal discomfort [Unknown]
  - Drug hypersensitivity [Unknown]
  - Abnormal behaviour [Unknown]
  - Lung disorder [Unknown]
  - Stasis dermatitis [Unknown]
  - Coma [Recovered/Resolved]
  - Head injury [Unknown]
  - Oedema [Unknown]
  - Off label use [Unknown]
  - Fluid retention [Not Recovered/Not Resolved]
  - Generalised tonic-clonic seizure [Unknown]
  - Brain injury [Unknown]
  - Overdose [Unknown]
  - Post-traumatic stress disorder [Not Recovered/Not Resolved]
  - Sinusitis [Recovered/Resolved]

NARRATIVE: CASE EVENT DATE: 200512
